FAERS Safety Report 23673657 (Version 1)
Quarter: 2024Q1

REPORT INFORMATION
  Report Type: Report from Study
  Country: CA (occurrence: CA)
  Receive Date: 20240326
  Receipt Date: 20240326
  Transmission Date: 20240410
  Serious: Yes (Death, Other)
  Sender: FDA-Public Use
  Company Number: CA-BAYER-2022A174671

PATIENT
  Age: 32 Year
  Sex: Female

DRUGS (10)
  1. VITRAKVI [Suspect]
     Active Substance: LAROTRECTINIB
     Indication: Glioblastoma multiforme
     Dosage: 100 MG, BID
     Route: 048
     Dates: start: 20221122, end: 20221206
  2. VITRAKVI [Suspect]
     Active Substance: LAROTRECTINIB
     Indication: Glioblastoma multiforme
     Dosage: 100 MG, BID
     Route: 048
     Dates: start: 20221221, end: 2023
  3. TYLENOL [Concomitant]
     Active Substance: ACETAMINOPHEN
  4. GRAVOL [Concomitant]
     Active Substance: DIMENHYDRINATE
  5. DIPHENHYDRAMINE HYDROCHLORIDE [Concomitant]
     Active Substance: DIPHENHYDRAMINE HYDROCHLORIDE
  6. EPINEPHRINE [Concomitant]
     Active Substance: EPINEPHRINE
  7. HYDROCORTISONE [Concomitant]
     Active Substance: HYDROCORTISONE
  8. OXYGEN [Concomitant]
     Active Substance: OXYGEN
  9. ALBUTEROL [Concomitant]
     Active Substance: ALBUTEROL
  10. ATROVENT [Concomitant]
     Active Substance: IPRATROPIUM BROMIDE

REACTIONS (4)
  - Glioblastoma multiforme [Fatal]
  - Thrombocytopenia [None]
  - Urosepsis [None]
  - Drug ineffective [None]

NARRATIVE: CASE EVENT DATE: 20221206
